FAERS Safety Report 5564778-6 (Version None)
Quarter: 2007Q4

REPORT INFORMATION
  Report Type: 
  Country: None (occurrence: None)
  Receive Date: 20071212
  Receipt Date: 20071127
  Transmission Date: 20080405
  Serious: Yes (Other)
  Sender: FDA-Public Use
  Company Number: A-CH2007-18262

PATIENT
  Age: 48 Year
  Sex: Male
  Weight: 60 kg

DRUGS (5)
  1. ZAVESCA [Suspect]
     Indication: GAUCHER'S DISEASE
     Dosage: 100 MG, TID; 100 MG, QD, ORAL
     Route: 048
     Dates: end: 20070629
  2. ZAVESCA [Suspect]
     Indication: GAUCHER'S DISEASE
     Dosage: 100 MG, TID; 100 MG, QD, ORAL
     Route: 048
     Dates: start: 20061005
  3. CLASTOBAN (CLODRONATE DISODIUM) [Concomitant]
  4. COMBIVIR [Concomitant]
  5. SUSTIVA [Concomitant]

REACTIONS (5)
  - ABDOMINAL PAIN [None]
  - BONE PAIN [None]
  - COMPRESSION FRACTURE [None]
  - DIARRHOEA [None]
  - OSTEOLYSIS [None]
